FAERS Safety Report 14894584 (Version 3)
Quarter: 2018Q2

REPORT INFORMATION
  Report Type: Report from Study
  Country: US (occurrence: US)
  Receive Date: 20180515
  Receipt Date: 20180529
  Transmission Date: 20180711
  Serious: Yes (Other)
  Sender: FDA-Public Use
  Company Number: US-BRISTOL-MYERS SQUIBB COMPANY-BMS-2018-043223

PATIENT
  Age: 43 Year
  Sex: Female
  Weight: 66.22 kg

DRUGS (4)
  1. ENTINOSTAT [Suspect]
     Active Substance: ENTINOSTAT
     Indication: BREAST CANCER
     Dosage: UNK
     Route: 065
     Dates: start: 20171220, end: 20180103
  2. ENTINOSTAT [Suspect]
     Active Substance: ENTINOSTAT
     Indication: PRODUCT USED FOR UNKNOWN INDICATION
     Dosage: UNK
     Route: 065
  3. NIVOLUMAB [Suspect]
     Active Substance: NIVOLUMAB
     Indication: BREAST CANCER
     Dosage: 212
     Route: 065
     Dates: start: 20180103
  4. IPILIMUMAB [Suspect]
     Active Substance: IPILIMUMAB
     Indication: BREAST CANCER
     Dosage: 71 MG
     Route: 065
     Dates: start: 20180103

REACTIONS (1)
  - Seronegative arthritis [Not Recovered/Not Resolved]

NARRATIVE: CASE EVENT DATE: 20180423
